FAERS Safety Report 6439262-8 (Version None)
Quarter: 2009Q4

REPORT INFORMATION
  Report Type: 
  Country: None (occurrence: None)
  Receive Date: 20091113
  Receipt Date: 20091103
  Transmission Date: 20100525
  Serious: Yes (Congenital Anomaly)
  Sender: FDA-Public Use
  Company Number: NL-NOVOPROD-300285

PATIENT
  Sex: Female

DRUGS (1)
  1. LEVEMIR [Suspect]
     Indication: DRUG EXPOSURE DURING PREGNANCY
     Dosage: 34IU
     Route: 064
     Dates: start: 20090601

REACTIONS (6)
  - DRUG EXPOSURE DURING PREGNANCY [None]
  - HETEROTAXIA [None]
  - MATERNAL DRUGS AFFECTING FOETUS [None]
  - MULTIPLE CARDIAC DEFECTS [None]
  - PULMONARY ARTERY ATRESIA [None]
  - VENTRICULAR HYPOPLASIA [None]
